APPROVED DRUG PRODUCT: RUFINAMIDE
Active Ingredient: RUFINAMIDE
Strength: 400MG
Dosage Form/Route: TABLET;ORAL
Application: A204993 | Product #002 | TE Code: AB
Applicant: HETERO LABS LTD UNIT III
Approved: May 11, 2021 | RLD: No | RS: No | Type: RX